FAERS Safety Report 22607336 (Version 1)
Quarter: 2023Q2

REPORT INFORMATION
  Report Type: Report from Study
  Country: US (occurrence: US)
  Receive Date: 20230615
  Receipt Date: 20230615
  Transmission Date: 20230722
  Serious: Yes (Other)
  Sender: FDA-Public Use
  Company Number: US-ABBVIE-4767615

PATIENT
  Sex: Female

DRUGS (2)
  1. HUMIRA [Suspect]
     Active Substance: ADALIMUMAB
     Indication: Rheumatoid arthritis
     Dosage: CITRATE FREE, STRENGTH FORM :40 MG
     Route: 058
     Dates: start: 20230330
  2. HUMIRA [Suspect]
     Active Substance: ADALIMUMAB
     Indication: Psoriasis

REACTIONS (17)
  - Hysterectomy [Unknown]
  - Pulmonary congestion [Unknown]
  - Pain [Recovered/Resolved]
  - Meniscus injury [Unknown]
  - Asthenia [Recovering/Resolving]
  - Cough [Unknown]
  - Respiratory tract congestion [Unknown]
  - Blood urine present [Not Recovered/Not Resolved]
  - Sinus congestion [Unknown]
  - Pernicious anaemia [Unknown]
  - Bladder hypertrophy [Unknown]
  - Depressed mood [Recovering/Resolving]
  - Mucosal discolouration [Unknown]
  - Diarrhoea [Recovered/Resolved]
  - Headache [Recovered/Resolved]
  - Femur fracture [Unknown]
  - Breath sounds abnormal [Unknown]

NARRATIVE: CASE EVENT DATE: 20230101
